FAERS Safety Report 8551406 (Version 3)
Quarter: 2012Q4

REPORT INFORMATION
  Report Type: 
  Country: RU (occurrence: RU)
  Receive Date: 20120508
  Receipt Date: 20121001
  Transmission Date: 20130627
  Serious: Yes (Other)
  Sender: FDA-Public Use
  Company Number: RU-BAYER-2012-041140

PATIENT
  Age: 22 Year
  Sex: Female

DRUGS (1)
  1. YARINA [Suspect]
     Indication: CONTRACEPTION
     Dosage: UNK
     Route: 048
     Dates: start: 2009, end: 201203

REACTIONS (5)
  - Pregnancy on oral contraceptive [Recovered/Resolved]
  - Abortion threatened [None]
  - Abdominal pain [None]
  - Haemorrhage in pregnancy [None]
  - Exposure during pregnancy [None]
